FAERS Safety Report 7520170-6 (Version None)
Quarter: 2011Q2

REPORT INFORMATION
  Report Type: 
  Country: None (occurrence: None)
  Receive Date: 20110602
  Receipt Date: 20110530
  Transmission Date: 20111010
  Serious: Yes (Hospitalization, Other)
  Sender: FDA-Public Use
  Company Number: JP-ABBOTT-11P-087-0700527-00

PATIENT
  Sex: Male
  Weight: 1.7 kg

DRUGS (2)
  1. CEFDINIR [Suspect]
     Indication: IMPETIGO
     Route: 048
     Dates: start: 20110104, end: 20110106
  2. ACUATIM [Concomitant]
     Indication: PRODUCT USED FOR UNKNOWN INDICATION
     Dates: start: 20110104, end: 20110110

REACTIONS (2)
  - JAUNDICE ACHOLURIC [None]
  - HAEMOLYTIC ANAEMIA [None]
